FAERS Safety Report 17846889 (Version 1)
Quarter: 2020Q2

REPORT INFORMATION
  Report Type: Spontaneous
  Country: AU (occurrence: AU)
  Receive Date: 20200601
  Receipt Date: 20200601
  Transmission Date: 20200714
  Serious: Yes (Other)
  Sender: FDA-Public Use
  Company Number: AU-PFIZER INC-2020211473

PATIENT
  Age: 30 Year
  Sex: Male

DRUGS (5)
  1. SULFASALAZINE. [Suspect]
     Active Substance: SULFASALAZINE
     Dosage: UNK
     Route: 048
  2. GOLIMUMAB [Concomitant]
     Active Substance: GOLIMUMAB
     Dosage: UNK
  3. TACROLIMUS. [Concomitant]
     Active Substance: TACROLIMUS
     Dosage: UNK
     Route: 048
  4. MERCAPTOPURINE. [Concomitant]
     Active Substance: MERCAPTOPURINE
     Dosage: 75 MG
  5. PREDNISOLONE. [Concomitant]
     Active Substance: PREDNISOLONE
     Dosage: UNK

REACTIONS (6)
  - Colitis [Unknown]
  - Abdominal pain lower [Unknown]
  - Haematochezia [Unknown]
  - Asthenia [Unknown]
  - Frequent bowel movements [Unknown]
  - Poor quality sleep [Unknown]
